FAERS Safety Report 20471318 (Version 1)
Quarter: 2022Q1

REPORT INFORMATION
  Report Type: Spontaneous
  Country: CZ (occurrence: CZ)
  Receive Date: 20220214
  Receipt Date: 20220214
  Transmission Date: 20220423
  Serious: Yes (Death, Life-Threatening, Other)
  Sender: FDA-Public Use
  Company Number: CZ-AMGEN-CZESP2022022974

PATIENT

DRUGS (3)
  1. KYPROLIS [Suspect]
     Active Substance: CARFILZOMIB
     Indication: Plasma cell myeloma
     Dosage: UNK
     Route: 065
  2. LENALIDOMIDE [Suspect]
     Active Substance: LENALIDOMIDE
     Indication: Plasma cell myeloma
     Dosage: UNK
     Route: 065
  3. DEXAMETHASONE [Suspect]
     Active Substance: DEXAMETHASONE
     Indication: Plasma cell myeloma
     Dosage: UNK
     Route: 065

REACTIONS (10)
  - Plasma cell myeloma [Unknown]
  - Hypertension [Unknown]
  - Dyspnoea [Unknown]
  - Anaemia [Fatal]
  - Cardiac failure [Unknown]
  - Upper respiratory tract infection [Fatal]
  - Thrombocytopenia [Fatal]
  - Deep vein thrombosis [Fatal]
  - Neutropenia [Fatal]
  - Therapy partial responder [Unknown]
